FAERS Safety Report 14728833 (Version 2)
Quarter: 2018Q2

REPORT INFORMATION
  Report Type: Spontaneous
  Country: US (occurrence: US)
  Receive Date: 20180406
  Receipt Date: 20180504
  Transmission Date: 20180711
  Serious: Yes (Death)
  Sender: FDA-Public Use
  Company Number: US-SA-2018SA089745

PATIENT
  Age: 81 Year
  Sex: Female

DRUGS (3)
  1. AMBIEN [Suspect]
     Active Substance: ZOLPIDEM TARTRATE
     Route: 048
     Dates: start: 201707, end: 201707
  2. OXYCODONE [Interacting]
     Active Substance: OXYCODONE
     Route: 065
     Dates: start: 20170628
  3. OXYCODONE [Interacting]
     Active Substance: OXYCODONE
     Route: 065
     Dates: start: 20170627

REACTIONS (11)
  - Hyperkalaemia [Fatal]
  - Drug interaction [Fatal]
  - Circulatory collapse [Fatal]
  - Multiple organ dysfunction syndrome [Fatal]
  - Shock [Fatal]
  - Unresponsive to stimuli [Fatal]
  - Encephalopathy [Fatal]
  - Sepsis [Fatal]
  - Hypotension [Fatal]
  - Metabolic acidosis [Fatal]
  - Delirium [Fatal]

NARRATIVE: CASE EVENT DATE: 20170628
